FAERS Safety Report 16267373 (Version 1)
Quarter: 2019Q2

REPORT INFORMATION
  Report Type: Spontaneous
  Country: DE (occurrence: DE)
  Receive Date: 20190502
  Receipt Date: 20190502
  Transmission Date: 20190711
  Serious: Yes (Hospitalization, Other)
  Sender: FDA-Public Use
  Company Number: DE-TEVA-2019-DE-1043761

PATIENT
  Sex: Female
  Weight: 75 kg

DRUGS (1)
  1. CIPROFLOXACIN. [Suspect]
     Active Substance: CIPROFLOXACIN
     Route: 048
     Dates: start: 20180216, end: 20180226

REACTIONS (23)
  - Anxiety [Not Recovered/Not Resolved]
  - Tendon pain [Not Recovered/Not Resolved]
  - Back pain [Unknown]
  - Vomiting [Recovered/Resolved with Sequelae]
  - Vitreous detachment [Not Recovered/Not Resolved]
  - Panic attack [Unknown]
  - Gastrointestinal pain [Unknown]
  - Abdominal discomfort [Recovered/Resolved with Sequelae]
  - Musculoskeletal discomfort [Recovered/Resolved with Sequelae]
  - Spinal pain [Recovered/Resolved with Sequelae]
  - Intervertebral disc protrusion [Recovered/Resolved with Sequelae]
  - Tendon rupture [Not Recovered/Not Resolved]
  - Dysgeusia [Unknown]
  - Apathy [Recovered/Resolved with Sequelae]
  - Inflammation [Recovered/Resolved with Sequelae]
  - Visual impairment [Unknown]
  - Fear of death [Recovered/Resolved with Sequelae]
  - Prolapse [Recovered/Resolved with Sequelae]
  - Dyspnoea [Recovered/Resolved with Sequelae]
  - Dizziness [Recovered/Resolved with Sequelae]
  - Pain [Not Recovered/Not Resolved]
  - Hypoaesthesia oral [Unknown]
  - Head discomfort [Unknown]

NARRATIVE: CASE EVENT DATE: 20180226
